FAERS Safety Report 6801822-X (Version None)
Quarter: 2010Q2

REPORT INFORMATION
  Report Type: 
  Country: None (occurrence: None)
  Receive Date: 20100629
  Receipt Date: 20100621
  Transmission Date: 20101027
  Serious: Yes (Other)
  Sender: FDA-Public Use
  Company Number: US-ASTRAZENECA-2010SE29783

PATIENT
  Age: 50 Year
  Sex: Male

DRUGS (3)
  1. SEROQUEL [Suspect]
     Route: 048
  2. PAXIL [Suspect]
  3. MIRTAZAPINE [Concomitant]

REACTIONS (6)
  - COORDINATION ABNORMAL [None]
  - FEELING ABNORMAL [None]
  - HANGOVER [None]
  - INSOMNIA [None]
  - LOSS OF CONSCIOUSNESS [None]
  - QUALITY OF LIFE DECREASED [None]
